FAERS Safety Report 5242009-4 (Version None)
Quarter: 2007Q1

REPORT INFORMATION
  Report Type: 
  Country: None (occurrence: None)
  Receive Date: 20070220
  Receipt Date: 20070213
  Transmission Date: 20070707
  Serious: Yes (Other)
  Sender: FDA-Public Use
  Company Number: JP-PFIZER INC-2006156024

PATIENT
  Sex: Female
  Weight: 56 kg

DRUGS (3)
  1. ALDACTONE [Suspect]
     Indication: PRIMARY HYPERALDOSTERONISM
     Route: 048
     Dates: start: 20061117, end: 20061208
  2. ALDACTONE [Suspect]
     Route: 048
  3. ADALAT [Concomitant]
     Indication: HYPERTENSION
     Route: 048

REACTIONS (1)
  - METRORRHAGIA [None]
